FAERS Safety Report 5149704-6 (Version None)
Quarter: 2006Q4

REPORT INFORMATION
  Report Type: 
  Country: None (occurrence: None)
  Receive Date: 20061113
  Receipt Date: 20061102
  Transmission Date: 20070319
  Serious: Yes (Hospitalization)
  Sender: FDA-Public Use
  Company Number: AU-ROCHE-469471

PATIENT
  Age: 53 Year
  Sex: Male
  Weight: 78 kg

DRUGS (5)
  1. GRANISETRON  HCL [Suspect]
     Indication: VOMITING
     Route: 065
     Dates: start: 20060728, end: 20060731
  2. IFOSFAMIDE [Suspect]
     Route: 042
     Dates: start: 20060728, end: 20060731
  3. MESNA [Suspect]
     Route: 065
     Dates: start: 20060728, end: 20060731
  4. DEXAMETHASONE TAB [Suspect]
     Indication: VOMITING
     Route: 065
     Dates: start: 20060728, end: 20060731
  5. DOMPERIDONE [Suspect]
     Indication: VOMITING
     Route: 048
     Dates: start: 20060728, end: 20060731

REACTIONS (4)
  - AGITATION [None]
  - CONFUSIONAL STATE [None]
  - DYSPHASIA [None]
  - NAUSEA [None]
